FAERS Safety Report 17346595 (Version 1)
Quarter: 2020Q1

REPORT INFORMATION
  Report Type: Spontaneous
  Country: US (occurrence: US)
  Receive Date: 20200114
  Receipt Date: 20200114
  Transmission Date: 20200409
  Serious: No
  Sender: FDA-Public Use
  Company Number: None

PATIENT
  Age: 33 Year
  Sex: Male

DRUGS (1)
  1. ZARXIO [Suspect]
     Active Substance: FILGRASTIM-SNDZ
     Indication: MALIGNANT CONNECTIVE TISSUE NEOPLASM
     Route: 058

REACTIONS (1)
  - Off label use [None]

NARRATIVE: CASE EVENT DATE: 20200114
